FAERS Safety Report 16440854 (Version 1)
Quarter: 2019Q3

REPORT INFORMATION
  Report Type: Spontaneous
  Country: US (occurrence: US)
  Receive Date: 20190617
  Receipt Date: 20190617
  Transmission Date: 20191004
  Serious: Yes (Hospitalization)
  Sender: FDA-Public Use
  Company Number: None

PATIENT
  Age: 47 Year
  Sex: Male
  Weight: 57.24 kg

DRUGS (9)
  1. CHOLECALCIFEROL [Suspect]
     Active Substance: CHOLECALCIFEROL
     Dates: start: 20160808
  2. SIMETHICONE (DIMETHICONE) [Suspect]
     Active Substance: DIMETHICONE
     Dates: start: 20160808
  3. OXCARBAZEPINE. [Suspect]
     Active Substance: OXCARBAZEPINE
  4. POLYETHYLENE GLYCOL [Suspect]
     Active Substance: POLYETHYLENE GLYCOLS
     Dates: start: 20160808
  5. GEODON [Suspect]
     Active Substance: ZIPRASIDONE HYDROCHLORIDE\ZIPRASIDONE MESYLATE
  6. GUANFACINE. [Suspect]
     Active Substance: GUANFACINE
     Dates: start: 20160808
  7. SENNA [Suspect]
     Active Substance: SENNA LEAF\SENNOSIDES\SENNOSIDES A AND B
     Dates: start: 20160808
  8. ESOMEPRAZOLE. [Suspect]
     Active Substance: ESOMEPRAZOLE MAGNESIUM
     Dates: start: 20160808
  9. MULTIVITAMIN WITH MINERALS [Suspect]
     Active Substance: MINERALS\VITAMINS
     Dates: start: 20160808

REACTIONS (6)
  - Rhabdomyolysis [None]
  - Fall [None]
  - Agitation [None]
  - Psychomotor hyperactivity [None]
  - Neuroleptic malignant syndrome [None]
  - Intentional self-injury [None]

NARRATIVE: CASE EVENT DATE: 20190516
